FAERS Safety Report 23540377 (Version 1)
Quarter: 2024Q1

REPORT INFORMATION
  Report Type: Spontaneous
  Country: US (occurrence: US)
  Receive Date: 20240219
  Receipt Date: 20240219
  Transmission Date: 20240410
  Serious: No
  Sender: FDA-Public Use
  Company Number: US-Stemline Therapeutics, Inc.-2023ST004641

PATIENT
  Age: 77 Year
  Sex: Female

DRUGS (2)
  1. ORSERDU [Suspect]
     Active Substance: ELACESTRANT
     Indication: Product used for unknown indication
     Dosage: 345 MG, ORAL, ONCE A DAY
     Route: 048
     Dates: start: 20230824
  2. ORSERDU [Suspect]
     Active Substance: ELACESTRANT
     Dosage: 345 MG, ORAL, ONCE A DAY
     Route: 048
     Dates: start: 20230823

REACTIONS (5)
  - Malaise [Unknown]
  - COVID-19 [Unknown]
  - Product dose omission in error [Recovered/Resolved]
  - Frequent bowel movements [Unknown]
  - Gastrooesophageal reflux disease [Unknown]
